FAERS Safety Report 20756129 (Version 2)
Quarter: 2022Q2

REPORT INFORMATION
  Report Type: Report from Study
  Country: US (occurrence: US)
  Receive Date: 20220427
  Receipt Date: 20220510
  Transmission Date: 20220721
  Serious: Yes (Death)
  Sender: FDA-Public Use
  Company Number: US-TG THERAPEUTICS INC.-TGT002571

PATIENT
  Age: 87 Year
  Sex: Male

DRUGS (3)
  1. UBLITUXIMAB [Suspect]
     Active Substance: UBLITUXIMAB
     Indication: Chronic lymphocytic leukaemia
     Dosage: 900 MILLIGRAM, Q1W
     Route: 042
     Dates: start: 20200923
  2. UMBRALISIB [Suspect]
     Active Substance: UMBRALISIB
     Indication: Chronic lymphocytic leukaemia
     Dosage: 200 MILLIGRAM, QID
     Route: 048
     Dates: start: 20200923
  3. VENETOCLAX [Suspect]
     Active Substance: VENETOCLAX
     Indication: Chronic lymphocytic leukaemia
     Dosage: 300 MILLIGRAM, TID
     Route: 048
     Dates: start: 20200923

REACTIONS (1)
  - Death [Fatal]

NARRATIVE: CASE EVENT DATE: 20220409
